FAERS Safety Report 9300054 (Version 1)
Quarter: 2012Q4

REPORT INFORMATION
  Report Type: Spontaneous
  Country: US (occurrence: None)
  Receive Date: 20121106
  Receipt Date: 20121106
  Transmission Date: 20130627
  Serious: Yes (Death, Hospitalization)
  Sender: FDA-Public Use
  Company Number: JPI-P-025930

PATIENT
  Age: 63 Year
  Sex: Male

DRUGS (9)
  1. XYREM (500 MILLIGRAM/MILLILITERS, SOLUTION) (SODIUM OXYBATE) [Suspect]
     Indication: DRUG USE FOR UNKNOWN INDICATION
     Route: 048
     Dates: start: 20031217
  2. XYREM (500 MILLIGRAM/MILLILITERS, SOLUTION) (SODIUM OXYBATE) [Suspect]
     Indication: DRUG USE FOR UNKNOWN INDICATION
     Route: 048
  3. XYREM (500 MILLIGRAM/MILLILITERS, SOLUTION) (SODIUM OXYBATE) [Suspect]
     Indication: DRUG USE FOR UNKNOWN INDICATION
     Route: 048
     Dates: start: 20050913, end: 201209
  4. METFORMIN HYDROCHLORIDE [Concomitant]
  5. GLIPIZIDE [Concomitant]
  6. AMITRIPTYLINE [Concomitant]
  7. LOSARTAN POTASSIUM [Concomitant]
  8. HYDROCHLOROTHIAZIDE [Concomitant]
  9. TETRAHYDROCANNABINOL (THC) [Concomitant]

REACTIONS (3)
  - Myocardial infarction [None]
  - Hypercalcaemia [None]
  - Malignant melanoma [None]
